FAERS Safety Report 10140102 (Version 1)
Quarter: 2014Q2

REPORT INFORMATION
  Report Type: Spontaneous
  Country: CN (occurrence: CN)
  Receive Date: 20140429
  Receipt Date: 20140429
  Transmission Date: 20141212
  Serious: Yes (Other)
  Sender: FDA-Public Use
  Company Number: CN-PFIZER INC-2014113009

PATIENT
  Age: 79 Year
  Sex: Female
  Weight: 36.4 kg

DRUGS (1)
  1. SUTENT [Suspect]
     Indication: RENAL CANCER
     Dosage: 2 CAPSULE TWICE DAILY
     Route: 048
     Dates: start: 20121101, end: 20130701

REACTIONS (2)
  - Intestinal haemorrhage [Recovered/Resolved]
  - Large intestinal ulcer [Recovered/Resolved]
